FAERS Safety Report 16714276 (Version 2)
Quarter: 2019Q3

REPORT INFORMATION
  Report Type: Report from Study
  Country: CO (occurrence: CO)
  Receive Date: 20190819
  Receipt Date: 20190822
  Transmission Date: 20191004
  Serious: Yes (Death, Hospitalization, Other)
  Sender: FDA-Public Use
  Company Number: CO-SA-2019SA226178

PATIENT
  Age: 58 Year
  Sex: Male

DRUGS (1)
  1. CABAZITAXEL [Suspect]
     Active Substance: CABAZITAXEL
     Indication: PROSTATE CANCER METASTATIC
     Dosage: UNK, Q3W, 60MG/1.5ML
     Route: 042
     Dates: start: 20190805, end: 20190805

REACTIONS (7)
  - General physical health deterioration [Unknown]
  - Renal failure [Not Recovered/Not Resolved]
  - Metastases to spine [Not Recovered/Not Resolved]
  - Urine output decreased [Not Recovered/Not Resolved]
  - Cardio-respiratory arrest [Fatal]
  - Eating disorder [Not Recovered/Not Resolved]
  - Diarrhoea [Recovered/Resolved]

NARRATIVE: CASE EVENT DATE: 20190807
